FAERS Safety Report 5368682-8 (Version None)
Quarter: 2007Q2

REPORT INFORMATION
  Report Type: 
  Country: None (occurrence: None)
  Receive Date: 20070625
  Receipt Date: 20070316
  Transmission Date: 20071010
  Serious: No
  Sender: FDA-Public Use
  Company Number: US-BRISTOL-MYERS SQUIBB COMPANY-13716469

PATIENT
  Age: 64 Year
  Sex: Female
  Weight: 82 kg

DRUGS (5)
  1. ORENCIA [Suspect]
     Indication: RHEUMATOID ARTHRITIS
  2. CALTRATE [Concomitant]
  3. VITAMIN D [Concomitant]
  4. ADVIL [Concomitant]
  5. PREDNISONE TAB [Concomitant]
     Dates: end: 20061201

REACTIONS (1)
  - RASH MACULAR [None]
